FAERS Safety Report 22651770 (Version 1)
Quarter: 2023Q2

REPORT INFORMATION
  Report Type: Spontaneous
  Country: US (occurrence: US)
  Receive Date: 20230628
  Receipt Date: 20230628
  Transmission Date: 20230721
  Serious: No
  Sender: FDA-Public Use
  Company Number: US-CTI BIOPHARMA-2023US03577

PATIENT

DRUGS (13)
  1. VONJO [Suspect]
     Active Substance: PACRITINIB
     Indication: Myelofibrosis
     Dosage: 100 MG, QD
     Route: 048
     Dates: start: 202304, end: 20230401
  2. FAMOTIDINE [Concomitant]
     Active Substance: FAMOTIDINE
  3. FLUTICASONE [Concomitant]
     Active Substance: FLUTICASONE
  4. GABAPENTIN [Concomitant]
     Active Substance: GABAPENTIN
  5. JAKAFI [Concomitant]
     Active Substance: RUXOLITINIB
  6. LEVOTHYROXINE [Concomitant]
     Active Substance: LEVOTHYROXINE
  7. LOSARTAN [Concomitant]
     Active Substance: LOSARTAN
  8. MELOXICAM [Concomitant]
     Active Substance: MELOXICAM
  9. METFORMIN [Concomitant]
     Active Substance: METFORMIN HYDROCHLORIDE
  10. VITAMINS [Concomitant]
     Active Substance: VITAMINS
  11. ONDANSETRON [Concomitant]
     Active Substance: ONDANSETRON
  12. VALACYCLOVIR HYDROCHLORIDE [Concomitant]
     Active Substance: VALACYCLOVIR HYDROCHLORIDE
  13. CARVEDILOL [Concomitant]
     Active Substance: CARVEDILOL

REACTIONS (3)
  - Asthenia [Recovering/Resolving]
  - Vomiting [Recovering/Resolving]
  - Nausea [Recovering/Resolving]
